FAERS Safety Report 18078790 (Version 1)
Quarter: 2020Q3

REPORT INFORMATION
  Report Type: Report from Study
  Country: CA (occurrence: CA)
  Receive Date: 20200728
  Receipt Date: 20200728
  Transmission Date: 20201103
  Serious: Yes (Other)
  Sender: FDA-Public Use
  Company Number: CA-ACCORD-192541

PATIENT
  Age: 19 Year
  Sex: Male

DRUGS (14)
  1. NAPROXEN. [Concomitant]
     Active Substance: NAPROXEN
  2. SULFASALAZINE. [Concomitant]
     Active Substance: SULFASALAZINE
  3. METHOTREXATE. [Suspect]
     Active Substance: METHOTREXATE
     Indication: PRODUCT USED FOR UNKNOWN INDICATION
  4. OXYCODONE [Suspect]
     Active Substance: OXYCODONE
     Indication: PAIN
  5. SIMPONI [Concomitant]
     Active Substance: GOLIMUMAB
     Dosage: DOSAGE FORM: SOLUTION SUBCUTANEOUS
     Route: 058
  6. IBUPROFEN. [Concomitant]
     Active Substance: IBUPROFEN
  7. FOLIC ACID. [Concomitant]
     Active Substance: FOLIC ACID
  8. COLECALCIFEROL [Concomitant]
     Active Substance: CHOLECALCIFEROL
  9. MELOXICAM. [Concomitant]
     Active Substance: MELOXICAM
  10. COSENTYX [Suspect]
     Active Substance: SECUKINUMAB
     Indication: ANKYLOSING SPONDYLITIS
     Dosage: FREQUENCY: 1 EVERY 1 MONTHS
     Route: 058
  11. RABEPRAZOLE/RABEPRAZOLE SODIUM [Suspect]
     Active Substance: RABEPRAZOLE SODIUM
     Indication: PRODUCT USED FOR UNKNOWN INDICATION
     Route: 048
  12. REMICADE [Concomitant]
     Active Substance: INFLIXIMAB
     Dosage: DOSAGE FORM: POWDER FOR SOLUTION INTRAVENOUS
  13. PREDNISONE. [Concomitant]
     Active Substance: PREDNISONE
  14. HUMIRA [Concomitant]
     Active Substance: ADALIMUMAB
     Dosage: DOSAGE FORM: SOLUTION SUBCUTANEOUS
     Route: 058

REACTIONS (13)
  - Cough [Unknown]
  - Pain in extremity [Unknown]
  - Pyrexia [Unknown]
  - Ankylosing spondylitis [Unknown]
  - Acne [Unknown]
  - Uveitis [Unknown]
  - Arthropathy [Unknown]
  - Influenza [Unknown]
  - Drug ineffective [Unknown]
  - Nasopharyngitis [Unknown]
  - Oropharyngeal pain [Unknown]
  - Scab [Unknown]
  - Vomiting [Unknown]
